FAERS Safety Report 5412805-9 (Version None)
Quarter: 2007Q3

REPORT INFORMATION
  Report Type: 
  Country: None (occurrence: None)
  Receive Date: 20070813
  Receipt Date: 20070730
  Transmission Date: 20080115
  Serious: Yes (Congenital Anomaly)
  Sender: FDA-Public Use
  Company Number: US-ELI_LILLY_AND_COMPANY-US200708000338

PATIENT
  Sex: Female

DRUGS (2)
  1. CYMBALTA [Suspect]
     Route: 064
     Dates: end: 20060101
  2. LAMICTAL [Concomitant]
     Route: 064
     Dates: end: 20060101

REACTIONS (2)
  - CARDIAC MURMUR [None]
  - DRUG EXPOSURE DURING PREGNANCY [None]
